FAERS Safety Report 24944963 (Version 1)
Quarter: 2025Q1

REPORT INFORMATION
  Report Type: Report from Study
  Country: ZA (occurrence: ZA)
  Receive Date: 20250208
  Receipt Date: 20250208
  Transmission Date: 20250409
  Serious: Yes (Hospitalization)
  Sender: ABBVIE
  Company Number: ZA-ABBVIE-6115586

PATIENT
  Age: 42 Year
  Sex: Female

DRUGS (1)
  1. RINVOQ [Suspect]
     Active Substance: UPADACITINIB
     Indication: Rheumatoid arthritis
     Dosage: 15 MILLIGRAM
     Route: 048
     Dates: start: 20230530

REACTIONS (3)
  - Joint arthroplasty [Recovered/Resolved]
  - Impaired healing [Recovering/Resolving]
  - Incision site discharge [Recovering/Resolving]

NARRATIVE: CASE EVENT DATE: 20241213
